FAERS Safety Report 9481799 (Version 4)
Quarter: 2013Q4

REPORT INFORMATION
  Report Type: Report from Study
  Country: US (occurrence: US)
  Receive Date: 20130828
  Receipt Date: 20131001
  Transmission Date: 20140711
  Serious: Yes (Life-Threatening, Hospitalization)
  Sender: FDA-Public Use
  Company Number: US-MERCK-1306CAN006605

PATIENT
  Age: 4 Year
  Sex: Female
  Weight: 15.1 kg

DRUGS (8)
  1. VORINOSTAT [Suspect]
     Indication: NEUROBLASTOMA
     Dosage: 430 MG/M2/DOSE PO ON DAYS 1-4 AND 8-11, CYCLE 1
     Route: 048
     Dates: start: 20130506, end: 20130509
  2. VORINOSTAT [Suspect]
     Dosage: 430 MG/M2/DOSE PO ON DAYS 1-4 AND 8-11, CYCLE 2
     Route: 048
     Dates: start: 20130605, end: 20130608
  3. VORINOSTAT [Suspect]
     Dosage: 430 MG/M2/DOSE PO ON DAYS 1-4 AND 8-11, CYCLE 4
     Route: 048
     Dates: start: 20130802
  4. VORINOSTAT [Suspect]
     Dosage: UNK
     Dates: start: 20130513, end: 20130516
  5. VORINOSTAT [Suspect]
     Dosage: 430 MG/M2/DOSE PO ON DAYS 1-4 AND 8-11, CYCLE 4
     Route: 048
     Dates: start: 20130513, end: 20130516
  6. ISOTRETINOIN [Suspect]
     Indication: NEUROBLASTOMA
     Dosage: 80 MG/M2/DOSE PO BID ON DAYS 1-14, CYLCE 1
     Route: 048
     Dates: start: 20130506
  7. ISOTRETINOIN [Suspect]
     Dosage: 80 MG/M2/DOSE PO BID ON DAYS 1-14, CYCLE 2
     Route: 048
     Dates: start: 20130605, end: 20130611
  8. ISOTRETINOIN [Suspect]
     Dosage: 80 MG/M2/DOSE PO BID ON DAYS 1-14, CYCLE 4
     Route: 048
     Dates: start: 20130802

REACTIONS (6)
  - Neutrophil count decreased [Recovered/Resolved]
  - Urinary tract infection [Recovered/Resolved]
  - Urinary tract infection [Recovered/Resolved]
  - Pyrexia [Recovered/Resolved]
  - Pyrexia [Recovered/Resolved]
  - Dehydration [Recovered/Resolved]
